FAERS Safety Report 4431912-0 (Version None)
Quarter: 2004Q3

REPORT INFORMATION
  Report Type: 
  Country: None (occurrence: None)
  Receive Date: 20040818
  Receipt Date: 20040728
  Transmission Date: 20050211
  Serious: No
  Sender: FDA-Public Use
  Company Number: USA040773982

PATIENT
  Age: 11 Year
  Sex: Male

DRUGS (2)
  1. ZYPREXA [Suspect]
     Dosage: 10 MG DAY
     Dates: start: 20040701, end: 20040701
  2. ZYRTEC [Concomitant]

REACTIONS (2)
  - MEDICATION ERROR [None]
  - SOMNOLENCE [None]
